FAERS Safety Report 6217684-8 (Version None)
Quarter: 2009Q2

REPORT INFORMATION
  Report Type: 
  Country: None (occurrence: None)
  Receive Date: 20090608
  Receipt Date: 20090527
  Transmission Date: 20091009
  Serious: Yes (Other)
  Sender: FDA-Public Use
  Company Number: JP-PFIZER INC-2009219943

PATIENT

DRUGS (2)
  1. ALDACTONE [Suspect]
     Route: 048
  2. LASIX [Suspect]

REACTIONS (1)
  - DEAFNESS [None]
